FAERS Safety Report 9566150 (Version 1)
Quarter: 2013Q3

REPORT INFORMATION
  Report Type: Spontaneous
  Country: FR (occurrence: FR)
  Receive Date: 20130930
  Receipt Date: 20130930
  Transmission Date: 20140515
  Serious: Yes (Hospitalization, Other)
  Sender: FDA-Public Use
  Company Number: FR-MERCK-1309FRA009538

PATIENT
  Age: 69 Year
  Sex: Female

DRUGS (4)
  1. CANCIDAS [Suspect]
     Indication: PLEURAL FISTULA
     Dosage: UNK
     Route: 042
     Dates: start: 20130801, end: 20130820
  2. VANCOMYCIN [Suspect]
     Indication: PLEURAL FISTULA
     Dosage: UNK
     Route: 042
     Dates: start: 20130718, end: 20130830
  3. MERONEM [Suspect]
     Indication: PLEURAL FISTULA
     Dosage: UNK
     Route: 042
     Dates: start: 20130718, end: 20130730
  4. TRIFLUCAN [Suspect]
     Indication: PLEURAL FISTULA
     Dosage: UNK
     Route: 042
     Dates: start: 20130820, end: 20130902

REACTIONS (1)
  - Drug reaction with eosinophilia and systemic symptoms [Recovering/Resolving]
